FAERS Safety Report 5232017-1 (Version None)
Quarter: 2007Q1

REPORT INFORMATION
  Report Type: 
  Country: None (occurrence: None)
  Receive Date: 20070206
  Receipt Date: 20070123
  Transmission Date: 20070707
  Serious: No
  Sender: FDA-Public Use
  Company Number: JP-ELI_LILLY_AND_COMPANY-JP200701004847

PATIENT
  Age: 33 Year
  Sex: Female

DRUGS (5)
  1. ZYPREXA [Suspect]
     Indication: SCHIZOPHRENIA
     Dosage: 5 MG, DAILY (1/D)
     Route: 048
     Dates: start: 20061229
  2. TOLEDOMIN [Concomitant]
     Indication: SCHIZOPHRENIA
     Dosage: 100 MG, DAILY (1/D)
     Route: 048
     Dates: start: 20070101
  3. SOLANAX [Concomitant]
     Indication: SCHIZOPHRENIA
     Dosage: 2.4 MG, DAILY (1/D)
     Route: 048
     Dates: start: 20070101
  4. ROHYPNOL [Concomitant]
     Indication: INSOMNIA
     Dosage: 1 MG, DAILY (1/D)
     Route: 048
     Dates: start: 20061229
  5. SLOWHEIM [Concomitant]
     Indication: INSOMNIA
     Dosage: 1 D/F, DAILY (1/D)
     Route: 048
     Dates: start: 20061229

REACTIONS (3)
  - C-REACTIVE PROTEIN INCREASED [None]
  - PYREXIA [None]
  - WHITE BLOOD CELL COUNT INCREASED [None]
